FAERS Safety Report 4585881-3 (Version None)
Quarter: 2005Q1

REPORT INFORMATION
  Report Type: 
  Country: None (occurrence: None)
  Receive Date: 20050217
  Receipt Date: 20050208
  Transmission Date: 20050727
  Serious: Yes (Other)
  Sender: FDA-Public Use
  Company Number: GB-GLAXOSMITHKLINE-B0370707A

PATIENT
  Age: 71 Year

DRUGS (3)
  1. SERETIDE [Suspect]
     Indication: CHRONIC OBSTRUCTIVE PULMONARY DISEASE
     Dosage: 2PUFF UNKNOWN
     Dates: start: 20050114, end: 20050114
  2. ALBUTEROL [Concomitant]
  3. THEOPHYLLINE [Concomitant]
     Dosage: 200MG TWICE PER DAY
     Route: 048

REACTIONS (5)
  - CHEST DISCOMFORT [None]
  - HOT FLUSH [None]
  - JOINT STIFFNESS [None]
  - MUSCLE SPASMS [None]
  - PAIN IN EXTREMITY [None]
